FAERS Safety Report 23220218 (Version 1)
Quarter: 2023Q4

REPORT INFORMATION
  Report Type: Spontaneous
  Country: US (occurrence: US)
  Receive Date: 20231123
  Receipt Date: 20231123
  Transmission Date: 20240109
  Serious: Yes (Hospitalization, Other)
  Sender: FDA-Public Use
  Company Number: US-BRISTOL-MYERS SQUIBB COMPANY-2023-164418

PATIENT
  Age: 75 Year
  Sex: Female

DRUGS (1)
  1. LENALIDOMIDE [Suspect]
     Active Substance: LENALIDOMIDE
     Indication: Plasma cell myeloma recurrent
     Dosage: TAKE 1 CAPSULE BY MOUTH DAILY FOR 7 DAYS FOLLOWED BY 7 DAYS OFF, THEN REPEAT FOR A 28 DAY CYCLE
     Route: 048
     Dates: start: 20231114

REACTIONS (16)
  - Product dose omission issue [Unknown]
  - Neuropathy peripheral [Unknown]
  - Fall [Unknown]
  - Peripheral vascular disorder [Unknown]
  - Skin injury [Unknown]
  - Bone pain [Unknown]
  - Fatigue [Unknown]
  - Somnolence [Unknown]
  - Diarrhoea [Unknown]
  - COVID-19 [Unknown]
  - Constipation [Unknown]
  - Nausea [Unknown]
  - Decreased appetite [Unknown]
  - Off label use [Unknown]
  - Hyperkeratosis [Unknown]
  - Peripheral swelling [Unknown]
